FAERS Safety Report 19709147 (Version 3)
Quarter: 2021Q3

REPORT INFORMATION
  Report Type: Spontaneous
  Country: CA (occurrence: CA)
  Receive Date: 20210817
  Receipt Date: 20210831
  Transmission Date: 20211014
  Serious: Yes (Hospitalization, Other)
  Sender: FDA-Public Use
  Company Number: CA-PFIZER INC-2021682992

PATIENT
  Age: 79 Year
  Sex: Male
  Weight: 120.2 kg

DRUGS (17)
  1. XELJANZ [Suspect]
     Active Substance: TOFACITINIB CITRATE
     Indication: RHEUMATOID ARTHRITIS
     Dosage: 5 MG, 2X/DAY
     Route: 048
     Dates: start: 20210204
  2. MELATONIN [Concomitant]
     Active Substance: MELATONIN
     Dosage: 1 DF
  3. ASA [Concomitant]
     Active Substance: ASPIRIN
     Dosage: 1 DF
  4. METHOTREXATE. [Concomitant]
     Active Substance: METHOTREXATE
     Dosage: 1 DF
  5. AMLODIPINE [Concomitant]
     Active Substance: AMLODIPINE BESYLATE
     Dosage: 10 MG
  6. ATORVASTATIN [Concomitant]
     Active Substance: ATORVASTATIN
     Dosage: 1 DF
  7. XELJANZ [Suspect]
     Active Substance: TOFACITINIB CITRATE
     Dosage: 5 MG, 2X/DAY
     Route: 048
     Dates: start: 20210315
  8. ASA [Concomitant]
     Active Substance: ASPIRIN
     Dosage: 1 DF
  9. RABEPRAZOLE [Concomitant]
     Active Substance: RABEPRAZOLE
     Dosage: 10 MG
  10. SULFASALAZINE. [Concomitant]
     Active Substance: SULFASALAZINE
     Dosage: 500 MG, 2X/DAY
  11. SYNTHROID [Concomitant]
     Active Substance: LEVOTHYROXINE SODIUM
     Dosage: 1 DF (0.5MG)
  12. ASA [Concomitant]
     Active Substance: ASPIRIN
     Dosage: 1 DF
  13. ASA [Concomitant]
     Active Substance: ASPIRIN
     Dosage: 1 DF
  14. ASA [Concomitant]
     Active Substance: ASPIRIN
     Dosage: 1 DF
  15. ASA [Concomitant]
     Active Substance: ASPIRIN
     Dosage: 1 DF
  16. GABAPENTIN. [Concomitant]
     Active Substance: GABAPENTIN
     Dosage: 300 MG, 2X/DAY
  17. SYNTHROID [Concomitant]
     Active Substance: LEVOTHYROXINE SODIUM
     Dosage: 1 DF 0.5MG

REACTIONS (6)
  - Pain [Unknown]
  - Pollakiuria [Not Recovered/Not Resolved]
  - Balance disorder [Unknown]
  - Musculoskeletal stiffness [Unknown]
  - Faeces hard [Not Recovered/Not Resolved]
  - Malaise [Unknown]

NARRATIVE: CASE EVENT DATE: 2021
